FAERS Safety Report 6847594-4 (Version None)
Quarter: 2010Q3

REPORT INFORMATION
  Report Type: 
  Country: None (occurrence: None)
  Receive Date: 20100716
  Receipt Date: 20100707
  Transmission Date: 20110219
  Serious: Yes (Hospitalization)
  Sender: FDA-Public Use
  Company Number: US-PFIZER INC-2010084826

PATIENT
  Sex: Female
  Weight: 61.6 kg

DRUGS (11)
  1. BLINDED *NO SUBJECT DRUG [Suspect]
     Indication: URGE INCONTINENCE
     Dosage: UNK
     Dates: start: 20090820, end: 20091111
  2. BLINDED *PLACEBO [Suspect]
     Indication: URGE INCONTINENCE
     Dosage: UNK
     Dates: start: 20090820, end: 20091111
  3. BLINDED FESOTERODINE [Suspect]
     Indication: URGE INCONTINENCE
     Dosage: UNK
     Dates: start: 20090820, end: 20091111
  4. TOVIAZ [Suspect]
     Indication: URGE INCONTINENCE
     Dosage: 8 MG, 1X/DAY
     Route: 048
     Dates: start: 20091112, end: 20100616
  5. DILTIAZEM [Concomitant]
  6. VALSARTAN [Concomitant]
  7. CATAPRES [Concomitant]
  8. CELECOXIB [Concomitant]
  9. SIMVASTATIN [Concomitant]
  10. CANDESARTAN [Concomitant]
  11. CLOPIDOGREL [Concomitant]

REACTIONS (1)
  - INTESTINAL OBSTRUCTION [None]
